FAERS Safety Report 14696521 (Version 1)
Quarter: 2018Q1

REPORT INFORMATION
  Report Type: Spontaneous
  Country: US (occurrence: US)
  Receive Date: 20180330
  Receipt Date: 20180330
  Transmission Date: 20180509
  Serious: No
  Sender: FDA-Public Use
  Company Number: US-SA-2017SA068944

PATIENT
  Age: 26 Year
  Sex: Female

DRUGS (1)
  1. ALLEGRA [Suspect]
     Active Substance: FEXOFENADINE HYDROCHLORIDE
     Indication: MITE ALLERGY
     Route: 065

REACTIONS (4)
  - Erythema [Recovering/Resolving]
  - Headache [Recovering/Resolving]
  - Palatal oedema [Recovering/Resolving]
  - Haemoptysis [Recovering/Resolving]
